FAERS Safety Report 5247283-6 (Version None)
Quarter: 2007Q1

REPORT INFORMATION
  Report Type: 
  Country: None (occurrence: None)
  Receive Date: 20070227
  Receipt Date: 20070212
  Transmission Date: 20070707
  Serious: Yes (Hospitalization, Other)
  Sender: FDA-Public Use
  Company Number: PHBS2007BR02854

PATIENT
  Age: 40 Year
  Sex: Male
  Weight: 112 kg

DRUGS (2)
  1. SLOW-K [Suspect]
     Indication: BLOOD POTASSIUM DECREASED
     Dosage: 2400 MG/DAY
     Route: 048
  2. SLOW-K [Suspect]
     Dosage: 1200 MMG/DAY
     Route: 048

REACTIONS (5)
  - BLOOD POTASSIUM DECREASED [None]
  - CHEST PAIN [None]
  - EMOTIONAL DISTRESS [None]
  - NERVOUSNESS [None]
  - TACHYCARDIA [None]
